FAERS Safety Report 4446785-X (Version None)
Quarter: 2004Q3

REPORT INFORMATION
  Report Type: 
  Country: None (occurrence: None)
  Receive Date: 20040910
  Receipt Date: 20040823
  Transmission Date: 20050211
  Serious: Yes (Death)
  Sender: FDA-Public Use
  Company Number: DSA_81031_2004

PATIENT
  Age: 34 Year
  Sex: Female
  Weight: 72.1219 kg

DRUGS (3)
  1. XYREM [Suspect]
     Indication: INSOMNIA
     Dosage: 4.5 G NIGHTLY PO
     Route: 048
     Dates: start: 20040623, end: 20040707
  2. TEMAZEPAM [Suspect]
  3. ZOLPIDEM TARTRATE [Suspect]

REACTIONS (7)
  - BRAIN OEDEMA [None]
  - COMPLETED SUICIDE [None]
  - DROWNING [None]
  - DRUG TOXICITY [None]
  - NEPHROSCLEROSIS [None]
  - PULMONARY CONGESTION [None]
  - PULMONARY OEDEMA [None]
